FAERS Safety Report 9106852 (Version 2)
Quarter: 2013Q1

REPORT INFORMATION
  Report Type: Report from Study
  Country: KR (occurrence: KR)
  Receive Date: 20130221
  Receipt Date: 20130305
  Transmission Date: 20140127
  Serious: Yes (Death)
  Sender: FDA-Public Use
  Company Number: KR-ASTELLAS-2013JP002354

PATIENT
  Age: 43 Year
  Sex: Female

DRUGS (7)
  1. TACROLIMUS [Suspect]
     Indication: IMMUNOSUPPRESSION
     Dosage: 2 MG, UNKNOWN/D
     Route: 042
     Dates: start: 20121016, end: 2012
  2. TACROLIMUS [Suspect]
     Indication: IMMUNOSUPPRESSION
     Dosage: 2 MG, UNKNOWN/D
     Route: 048
     Dates: start: 2012, end: 20121122
  3. SIROLIMUS [Suspect]
     Indication: IMMUNOSUPPRESSION
     Dosage: 1 MG, UNKNOWN/D
     Route: 048
     Dates: start: 20121016, end: 20121122
  4. ACYCLOVIR                          /00587301/ [Concomitant]
     Dosage: 800 MG, UNKNOWN/D
     Route: 048
     Dates: start: 20121105
  5. MACPERAN [Concomitant]
     Dosage: 15 MG, UNKNOWN/D
     Route: 048
     Dates: start: 20121104
  6. ZANTAC [Concomitant]
     Dosage: 300 MG, UNKNOWN/D
     Route: 048
     Dates: start: 20121104
  7. ITRACONAZOL [Concomitant]
     Dosage: 200 MG, UNKNOWN/D
     Route: 048
     Dates: start: 20121104

REACTIONS (3)
  - Thrombocytopenia [Fatal]
  - Venoocclusive disease [Fatal]
  - Haemorrhage intracranial [Fatal]
